FAERS Safety Report 21057549 (Version 1)
Quarter: 2022Q3

REPORT INFORMATION
  Report Type: Other
  Country: FR (occurrence: FR)
  Receive Date: 20220708
  Receipt Date: 20220708
  Transmission Date: 20221027
  Serious: Yes (Hospitalization)
  Sender: FDA-Public Use
  Company Number: None

PATIENT
  Age: 89 Year
  Weight: 56 kg

DRUGS (8)
  1. DICLOFENAC [Suspect]
     Active Substance: DICLOFENAC
     Indication: Back pain
     Route: 061
     Dates: start: 20211224, end: 20211227
  2. ALPRAZOLAM [Suspect]
     Active Substance: ALPRAZOLAM
     Indication: Anxiety disorder
     Dosage: 1.75 MILLIGRAM, OD
     Route: 048
  3. METHOCARBAMOL [Suspect]
     Active Substance: METHOCARBAMOL
     Indication: Back pain
     Dosage: 2 DOSAGE FORM, OD
     Route: 048
     Dates: start: 20211224, end: 20211227
  4. OMEPRAZOLE [Suspect]
     Active Substance: OMEPRAZOLE
     Indication: Prophylaxis
     Dosage: 20 MILLIGRAM, OD
     Route: 048
     Dates: start: 20211224, end: 20211227
  5. IBUPROFEN [Suspect]
     Active Substance: IBUPROFEN
     Indication: Back pain
     Dosage: 400 MILLIGRAM, OD
     Route: 048
     Dates: start: 20211224, end: 20211227
  6. IBUPROFEN [Concomitant]
     Active Substance: IBUPROFEN
     Route: 065
  7. ACETAMINOPHEN [Concomitant]
     Active Substance: ACETAMINOPHEN
     Dosage: UNK
     Route: 065
  8. NIFLUMIC ACID [Concomitant]
     Active Substance: NIFLUMIC ACID
     Route: 065

REACTIONS (2)
  - Confusional state [Recovered/Resolved]
  - Hallucination, visual [Recovered/Resolved]

NARRATIVE: CASE EVENT DATE: 20211226
